FAERS Safety Report 4321156-5 (Version None)
Quarter: 2004Q1

REPORT INFORMATION
  Report Type: 
  Country: None (occurrence: None)
  Receive Date: 20040315
  Receipt Date: 20031028
  Transmission Date: 20041129
  Serious: Yes (Other)
  Sender: FDA-Public Use
  Company Number: PHEH2003US09967

PATIENT
  Sex: Male

DRUGS (1)
  1. TRILEPTAL [Suspect]
     Indication: BIPOLAR DISORDER
     Dosage: 600 MG, BID

REACTIONS (3)
  - BLOOD SODIUM ABNORMAL [None]
  - ELECTROENCEPHALOGRAM ABNORMAL [None]
  - MENTAL IMPAIRMENT [None]
